FAERS Safety Report 20628512 (Version 1)
Quarter: 2022Q1

REPORT INFORMATION
  Report Type: Spontaneous
  Country: US (occurrence: None)
  Receive Date: 20220323
  Receipt Date: 20220323
  Transmission Date: 20220423
  Serious: No
  Sender: FDA-Public Use
  Company Number: None

PATIENT
  Age: 62 Year
  Sex: Female
  Weight: 65.7 kg

DRUGS (3)
  1. CLEARLAX [Suspect]
     Active Substance: POLYETHYLENE GLYCOL 3350
     Indication: Colonoscopy
  2. PEPCID [Concomitant]
     Active Substance: FAMOTIDINE
  3. HERBALS\TURMERIC [Concomitant]
     Active Substance: HERBALS\TURMERIC

REACTIONS (5)
  - Urticaria [None]
  - Chest pain [None]
  - Flatulence [None]
  - Uveitis [None]
  - Nausea [None]

NARRATIVE: CASE EVENT DATE: 20220320
